FAERS Safety Report 20719176 (Version 2)
Quarter: 2022Q2

REPORT INFORMATION
  Report Type: Spontaneous
  Country: SE (occurrence: SE)
  Receive Date: 20220418
  Receipt Date: 20220530
  Transmission Date: 20220720
  Serious: Yes (Other)
  Sender: FDA-Public Use
  Company Number: SE-ORGANON-O2204SWE001183

PATIENT
  Sex: Female

DRUGS (1)
  1. NEXPLANON [Suspect]
     Active Substance: ETONOGESTREL
     Dosage: 1 DOSAGE FORM (1 IMPLANT); TREATED FOR TWO YEARS
     Route: 059
     Dates: start: 2019

REACTIONS (2)
  - Pregnancy with implant contraceptive [Unknown]
  - Unintended pregnancy [Unknown]

NARRATIVE: CASE EVENT DATE: 20210907
